FAERS Safety Report 21929811 (Version 1)
Quarter: 2023Q1

REPORT INFORMATION
  Report Type: Spontaneous
  Country: CA (occurrence: CA)
  Receive Date: 20230131
  Receipt Date: 20230131
  Transmission Date: 20230418
  Serious: Yes (Other)
  Sender: FDA-Public Use
  Company Number: CA-SAMSUNG BIOEPIS-SB-2023-02202

PATIENT
  Age: 42 Year
  Sex: Male
  Weight: 76 kg

DRUGS (1)
  1. INFLIXIMAB [Suspect]
     Active Substance: INFLIXIMAB
     Indication: Crohn^s disease
     Route: 042

REACTIONS (12)
  - Intestinal obstruction [Unknown]
  - Abdominal pain [Unknown]
  - Arthralgia [Unknown]
  - Constipation [Unknown]
  - Gastrointestinal stenosis [Unknown]
  - Illness [Unknown]
  - Pain [Unknown]
  - Paraesthesia [Unknown]
  - Pruritus [Unknown]
  - Drug level above therapeutic [Unknown]
  - Intentional product use issue [Unknown]
  - Off label use [Unknown]
